FAERS Safety Report 24213069 (Version 1)
Quarter: 2024Q3

REPORT INFORMATION
  Report Type: Report from Study
  Country: US (occurrence: US)
  Receive Date: 20240815
  Receipt Date: 20240815
  Transmission Date: 20241017
  Serious: Yes (Life-Threatening, Other)
  Sender: PAREXEL
  Company Number: US-STEMLINE THERAPEUTICS, INC-2024-STML-US000043

PATIENT

DRUGS (1)
  1. ORSERDU [Suspect]
     Active Substance: ELACESTRANT
     Indication: Product used for unknown indication
     Dosage: 3 DOSAGE FORM, DAILY
     Route: 048
     Dates: start: 20240514

REACTIONS (3)
  - Malignant neoplasm progression [Not Recovered/Not Resolved]
  - Metastases to lung [Not Recovered/Not Resolved]
  - Metastases to chest wall [Not Recovered/Not Resolved]

NARRATIVE: CASE EVENT DATE: 20240805
